FAERS Safety Report 7884016-9 (Version None)
Quarter: 2011Q4

REPORT INFORMATION
  Report Type: 
  Country: None (occurrence: None)
  Receive Date: 20111102
  Receipt Date: 20111021
  Transmission Date: 20120403
  Serious: Yes (Other)
  Sender: FDA-Public Use
  Company Number: PHEH2011US07588

PATIENT
  Sex: Female

DRUGS (7)
  1. METFORMIN HCL [Concomitant]
     Dosage: 1000 MG, DAILY
  2. CELEXA [Concomitant]
     Dosage: 1 DF, QD
  3. POTASSIUM [Concomitant]
  4. LIPITOR [Concomitant]
  5. DIOVAN [Suspect]
  6. SAVELLA [Concomitant]
     Indication: FIBROMYALGIA
  7. DIOVAN HCT [Suspect]
     Dosage: 1 DF, QD

REACTIONS (2)
  - SKIN INFECTION [None]
  - LOCALISED INFECTION [None]
